FAERS Safety Report 20907866 (Version 1)
Quarter: 2022Q2

REPORT INFORMATION
  Report Type: Spontaneous
  Country: CN (occurrence: CN)
  Receive Date: 20220602
  Receipt Date: 20220602
  Transmission Date: 20220721
  Serious: Yes (Other)
  Sender: FDA-Public Use
  Company Number: CN-PFIZER INC-202200784913

PATIENT
  Age: 82 Year
  Sex: Male
  Weight: 55 kg

DRUGS (3)
  1. CRIZOTINIB [Suspect]
     Active Substance: CRIZOTINIB
     Indication: Lung neoplasm
     Dosage: 250 MG, 2X/DAY
     Route: 048
     Dates: start: 20220327, end: 20220429
  2. PEMETREXED DISODIUM [Suspect]
     Active Substance: PEMETREXED DISODIUM
     Indication: Lung neoplasm
     Dosage: 0.5 G, 1X/DAY
     Dates: start: 20220429, end: 20220429
  3. LOBAPLATIN [Suspect]
     Active Substance: LOBAPLATIN
     Indication: Lung neoplasm
     Dosage: 50 MG, 1X/DAY
     Dates: start: 20220429, end: 20220429

REACTIONS (1)
  - Granulocyte count decreased [Recovering/Resolving]

NARRATIVE: CASE EVENT DATE: 20220514
